FAERS Safety Report 5834253-X (Version None)
Quarter: 2008Q3

REPORT INFORMATION
  Report Type: 
  Country: None (occurrence: None)
  Receive Date: 20080805
  Receipt Date: 20080728
  Transmission Date: 20090109
  Serious: Yes (Hospitalization, Other)
  Sender: FDA-Public Use
  Company Number: PHMT2007CA02247

PATIENT
  Sex: Male

DRUGS (11)
  1. SANDOSTATIN LAR [Suspect]
     Indication: ACROMEGALY
     Dosage: 20 MG, QMO
     Route: 030
     Dates: start: 20071108, end: 20080620
  2. SANDOSTATIN LAR [Suspect]
     Dosage: 30MG, QMO
     Route: 030
     Dates: start: 20080131
  3. SANDOSTATIN LAR [Suspect]
     Dosage: 20MG, QMO
     Route: 030
     Dates: start: 20080328
  4. ADVAIR DISKUS 100/50 [Concomitant]
  5. BACLOFEN [Concomitant]
  6. ACETYLSALICYLIC ACID SRT [Concomitant]
  7. CODEINE SUL TAB [Concomitant]
  8. FLONASE [Concomitant]
  9. OTRIVIN [Concomitant]
  10. VENTOLIN [Concomitant]
  11. METOPROLOL [Concomitant]

REACTIONS (49)
  - ACUTE STRESS DISORDER [None]
  - AMNESIA [None]
  - ANOREXIA [None]
  - ASTHENIA [None]
  - ASTHMA [None]
  - BENIGN PROSTATIC HYPERPLASIA [None]
  - BLOOD CORTISOL DECREASED [None]
  - BLOOD CREATININE DECREASED [None]
  - BLOOD PRESSURE INCREASED [None]
  - BLOOD PRESSURE SYSTOLIC INCREASED [None]
  - CARDIAC DISORDER [None]
  - CONSTIPATION [None]
  - CRANIOTOMY [None]
  - DEAFNESS [None]
  - DISTURBANCE IN ATTENTION [None]
  - DIZZINESS [None]
  - DYSPNOEA [None]
  - FATIGUE [None]
  - HAIR TEXTURE ABNORMAL [None]
  - HEADACHE [None]
  - HEARING IMPAIRED [None]
  - HEART RATE INCREASED [None]
  - HORMONE LEVEL ABNORMAL [None]
  - LIBIDO DECREASED [None]
  - LYMPHOCYTE COUNT DECREASED [None]
  - MEAN PLATELET VOLUME DECREASED [None]
  - MIGRAINE [None]
  - MOVEMENT DISORDER [None]
  - MUSCLE SPASMS [None]
  - MUSCLE TWITCHING [None]
  - MUSCULAR WEAKNESS [None]
  - NASOPHARYNGITIS [None]
  - NAUSEA [None]
  - OCULAR HYPERAEMIA [None]
  - OEDEMA [None]
  - PAIN [None]
  - PALPITATIONS [None]
  - SECONDARY HYPOTHYROIDISM [None]
  - SENSITIVITY OF TEETH [None]
  - SHOCK [None]
  - SINUS CONGESTION [None]
  - SOMNOLENCE [None]
  - SPEECH DISORDER [None]
  - SPINAL COLUMN STENOSIS [None]
  - TACHYCARDIA [None]
  - TEMPERATURE INTOLERANCE [None]
  - TINNITUS [None]
  - TUMOUR EXCISION [None]
  - VISUAL IMPAIRMENT [None]
